FAERS Safety Report 16828536 (Version 2)
Quarter: 2019Q3

REPORT INFORMATION
  Report Type: Spontaneous
  Country: US (occurrence: US)
  Receive Date: 20190919
  Receipt Date: 20190923
  Transmission Date: 20191005
  Serious: Yes (Other)
  Sender: FDA-Public Use
  Company Number: US-JNJFOC-20190924619

PATIENT
  Age: 70 Year
  Sex: Male
  Weight: 87 kg

DRUGS (2)
  1. ZYTIGA [Suspect]
     Active Substance: ABIRATERONE ACETATE
     Indication: NEOPLASM MALIGNANT
     Route: 048
     Dates: start: 201908, end: 201908
  2. PREDNISONE. [Concomitant]
     Active Substance: PREDNISONE
     Route: 065

REACTIONS (1)
  - Atrial flutter [Recovered/Resolved]

NARRATIVE: CASE EVENT DATE: 20190828
